FAERS Safety Report 7292280-2 (Version None)
Quarter: 2011Q1

REPORT INFORMATION
  Report Type: 
  Country: None (occurrence: None)
  Receive Date: 20110215
  Receipt Date: 20100920
  Transmission Date: 20110831
  Serious: Yes (Hospitalization)
  Sender: FDA-Public Use
  Company Number: US-BAYER-201014347NA

PATIENT
  Sex: Female
  Weight: 66 kg

DRUGS (5)
  1. PEPCID [Concomitant]
     Indication: ABDOMINAL PAIN UPPER
  2. YAZ [Suspect]
     Indication: MENORRHAGIA
  3. SYNTHROID [Concomitant]
     Indication: HYPOTHYROIDISM
  4. TUMS [CALCIUM CARBONATE] [Concomitant]
     Indication: ABDOMINAL PAIN UPPER
  5. YAZ [Suspect]
     Indication: PREMENSTRUAL SYNDROME
     Route: 048
     Dates: start: 20070101, end: 20090301

REACTIONS (7)
  - GALLBLADDER CHOLESTEROLOSIS [None]
  - BACK PAIN [None]
  - ABDOMINAL PAIN UPPER [None]
  - CHOLECYSTITIS CHRONIC [None]
  - ABDOMINAL DISCOMFORT [None]
  - DYSPEPSIA [None]
  - EPIGASTRIC DISCOMFORT [None]
